FAERS Safety Report 6271443-9 (Version None)
Quarter: 2009Q3

REPORT INFORMATION
  Report Type: 
  Country: None (occurrence: None)
  Receive Date: 20090715
  Receipt Date: 20090715
  Transmission Date: 20100115
  Serious: Yes (Other)
  Sender: FDA-Public Use
  Company Number: None

PATIENT
  Sex: Female
  Weight: 97.3 kg

DRUGS (3)
  1. VIMPAT [Suspect]
     Indication: COMPLEX PARTIAL SEIZURES
     Dosage: 50 MG BID PO
     Route: 048
     Dates: start: 20090712, end: 20090714
  2. TOPIRMATE [Concomitant]
  3. KEPPRA [Concomitant]

REACTIONS (1)
  - SUICIDAL IDEATION [None]
